FAERS Safety Report 20471020 (Version 2)
Quarter: 2022Q1

REPORT INFORMATION
  Report Type: Spontaneous
  Country: MY (occurrence: MY)
  Receive Date: 20220214
  Receipt Date: 20220324
  Transmission Date: 20220424
  Serious: Yes (Hospitalization, Other)
  Sender: FDA-Public Use
  Company Number: MY-BRISTOL-MYERS SQUIBB COMPANY-BMS-2022-015910

PATIENT
  Age: 39 Year
  Sex: Male
  Weight: 66.5 kg

DRUGS (9)
  1. EFAVIRENZ [Suspect]
     Active Substance: EFAVIRENZ
     Indication: HIV infection
     Dosage: UNK
     Route: 065
     Dates: start: 201811
  2. EMTRICITABINE\TENOFOVIR [Suspect]
     Active Substance: EMTRICITABINE\TENOFOVIR
     Indication: HIV infection
     Dosage: 2 MONTH
     Route: 065
     Dates: start: 20181101
  3. DOLUTEGRAVIR [Suspect]
     Active Substance: DOLUTEGRAVIR
     Indication: HIV infection
     Dosage: UNK
     Route: 065
     Dates: start: 2018
  4. RIFAMPIN [Suspect]
     Active Substance: RIFAMPIN
     Indication: HIV infection
     Dosage: 600 MILLIGRAM, QMO
     Route: 065
     Dates: start: 201906
  5. RIFAMPIN [Suspect]
     Active Substance: RIFAMPIN
     Dosage: 600 MILLIGRAM, QMO
     Route: 065
     Dates: start: 201903
  6. DAPSONE [Suspect]
     Active Substance: DAPSONE
     Indication: HIV infection
     Dosage: 100 MILLIGRAM, QD
     Route: 065
     Dates: start: 201906
  7. DAPSONE [Suspect]
     Active Substance: DAPSONE
     Dosage: 100 MILLIGRAM, QD
     Route: 065
     Dates: start: 201903
  8. CLOFAZIMINE [Suspect]
     Active Substance: CLOFAZIMINE
     Indication: HIV infection
     Dosage: 300 MILLIGRAM, QMO
     Route: 065
     Dates: start: 201903
  9. CLOFAZIMINE [Suspect]
     Active Substance: CLOFAZIMINE
     Dosage: 50 MILLIGRAM FOR TWELVE MONTHS
     Route: 065
     Dates: start: 201906

REACTIONS (6)
  - Type 1 lepra reaction [Recovered/Resolved]
  - Immune reconstitution inflammatory syndrome [Recovered/Resolved]
  - Tuberculoid leprosy [Recovered/Resolved]
  - Disorientation [Unknown]
  - Vomiting [Unknown]
  - Nausea [Unknown]

NARRATIVE: CASE EVENT DATE: 20180101
